FAERS Safety Report 4739067-X (Version None)
Quarter: 2005Q3

REPORT INFORMATION
  Report Type: 
  Country: None (occurrence: None)
  Receive Date: 20050810
  Receipt Date: 20050405
  Transmission Date: 20060218
  Serious: No
  Sender: FDA-Public Use
  Company Number: US-GLAXOSMITHKLINE-A0552839A

PATIENT
  Age: 13 Year
  Sex: Female

DRUGS (1)
  1. PAXIL [Suspect]
     Indication: DRUG USE FOR UNKNOWN INDICATION
     Dosage: 1.5TSP PER DAY
     Route: 065
     Dates: start: 20040629

REACTIONS (1)
  - PHARMACEUTICAL PRODUCT COMPLAINT [None]
